FAERS Safety Report 26088902 (Version 1)
Quarter: 2025Q4

REPORT INFORMATION
  Report Type: Spontaneous
  Country: EU (occurrence: EU)
  Receive Date: 20251125
  Receipt Date: 20251125
  Transmission Date: 20260118
  Serious: Yes (Other)
  Sender: EISAI
  Company Number: EU-Eisai-EC-2025-200256

PATIENT
  Age: 85 Year
  Sex: Female

DRUGS (2)
  1. ERIBULIN [Suspect]
     Active Substance: ERIBULIN
     Indication: Breast cancer metastatic
     Dosage: 1 CICLO G8
     Route: 042
     Dates: start: 20240731, end: 2025
  2. ERIBULIN [Suspect]
     Active Substance: ERIBULIN
     Dosage: 1 CICLO G8
     Route: 042
     Dates: start: 20250618, end: 20250618

REACTIONS (1)
  - Neutropenia [Recovered/Resolved]

NARRATIVE: CASE EVENT DATE: 20250701
